FAERS Safety Report 24352645 (Version 1)
Quarter: 2024Q3

REPORT INFORMATION
  Report Type: Report from Study
  Country: US (occurrence: US)
  Receive Date: 20240923
  Receipt Date: 20240923
  Transmission Date: 20241016
  Serious: No
  Sender: ROCHE
  Company Number: US-ROCHE-3428993

PATIENT
  Age: 46 Year
  Sex: Female

DRUGS (8)
  1. HERCEPTIN [Suspect]
     Active Substance: TRASTUZUMAB
     Indication: Breast cancer female
     Dosage: 450 MG EVERY 21 DAYS FOR 1 YEAR. DATE OF SERVICE: 16/DEC/2021 AT 600 MG.
     Route: 042
     Dates: start: 20211216
  2. HERCEPTIN [Suspect]
     Active Substance: TRASTUZUMAB
     Indication: Oestrogen receptor assay positive
     Route: 042
     Dates: start: 20211216
  3. PERJETA [Suspect]
     Active Substance: PERTUZUMAB
     Indication: Breast cancer female
     Dosage: THEN 420 MG EVERY 21 DAY FOR 1 YEAR. DATE OF SERVICE: 16/DEC/2021 AT 840 MG.
     Route: 042
     Dates: start: 20211216
  4. PERJETA [Suspect]
     Active Substance: PERTUZUMAB
     Indication: Oestrogen receptor assay positive
  5. TCHP [Concomitant]
  6. AMLODIPINE [Concomitant]
     Active Substance: AMLODIPINE BESYLATE
  7. TAMOXIFEN [Concomitant]
     Active Substance: TAMOXIFEN
  8. TOPIRAMATE [Concomitant]
     Active Substance: TOPIRAMATE

REACTIONS (2)
  - Off label use [Unknown]
  - No adverse event [Unknown]
